FAERS Safety Report 8094996-7 (Version None)
Quarter: 2012Q1

REPORT INFORMATION
  Report Type: 
  Country: None (occurrence: None)
  Receive Date: 20120131
  Receipt Date: 20120131
  Transmission Date: 20120608
  Serious: Yes (Other)
  Sender: FDA-Public Use
  Company Number: None

PATIENT
  Age: 27 Year
  Sex: Female
  Weight: 67.131 kg

DRUGS (1)
  1. NUVARING [Suspect]
     Indication: CONTRACEPTION
     Dates: start: 20120122, end: 20120128

REACTIONS (4)
  - DIARRHOEA [None]
  - SWELLING FACE [None]
  - VIRAL INFECTION [None]
  - DIZZINESS [None]
